FAERS Safety Report 19078445 (Version 2)
Quarter: 2021Q2

REPORT INFORMATION
  Report Type: Other
  Country: DE (occurrence: DE)
  Receive Date: 20210331
  Receipt Date: 20210505
  Transmission Date: 20210717
  Serious: Yes (Hospitalization)
  Sender: FDA-Public Use
  Company Number: DE-ROCHE-2348119

PATIENT
  Age: 61 Year
  Sex: Male

DRUGS (16)
  1. OCREVUS [Suspect]
     Active Substance: OCRELIZUMAB
     Route: 042
     Dates: start: 20201005
  2. TILIDIN [Concomitant]
     Active Substance: NALOXONE HYDROCHLORIDE\TILIDINE HYDROCHLORIDE
  3. PREGABALIN. [Concomitant]
     Active Substance: PREGABALIN
  4. CANDESARTAN. [Concomitant]
     Active Substance: CANDESARTAN
  5. BISOPROLOL [Concomitant]
     Active Substance: BISOPROLOL
  6. METFORMIN [Concomitant]
     Active Substance: METFORMIN HYDROCHLORIDE
  7. TAMSULOSIN [Concomitant]
     Active Substance: TAMSULOSIN
  8. OCREVUS [Suspect]
     Active Substance: OCRELIZUMAB
     Indication: PRIMARY PROGRESSIVE MULTIPLE SCLEROSIS
     Route: 042
     Dates: start: 20181005, end: 20181005
  9. DULOXALTA [Concomitant]
     Active Substance: DULOXETINE HYDROCHLORIDE
  10. DIGIMERCK [Concomitant]
     Active Substance: DIGITOXIN
  11. METFORMIN [Concomitant]
     Active Substance: METFORMIN HYDROCHLORIDE
  12. ELIQUIS [Concomitant]
     Active Substance: APIXABAN
  13. MODAFINIL. [Concomitant]
     Active Substance: MODAFINIL
  14. OCREVUS [Suspect]
     Active Substance: OCRELIZUMAB
     Route: 042
     Dates: start: 20181023
  15. OCREVUS [Suspect]
     Active Substance: OCRELIZUMAB
     Route: 042
     Dates: start: 20190619
  16. COVID?19 VACCINE NOS. [Suspect]
     Active Substance: COVID-19 VACCINE NOS
     Indication: PRODUCT USED FOR UNKNOWN INDICATION
     Dosage: 1ST VACCINATION
     Route: 065
     Dates: start: 20210419

REACTIONS (9)
  - B-lymphocyte count decreased [Recovered/Resolved]
  - Pain in extremity [Recovered/Resolved]
  - Abscess limb [Recovered/Resolved]
  - Urinary tract infection [Recovered/Resolved]
  - White blood cell count abnormal [Recovered/Resolved]
  - Blood test abnormal [Recovered/Resolved]
  - Lymphocyte count decreased [Not Recovered/Not Resolved]
  - Glycosylated haemoglobin increased [Recovered/Resolved]
  - Ultrasound bladder abnormal [Not Recovered/Not Resolved]

NARRATIVE: CASE EVENT DATE: 20190320
